FAERS Safety Report 10237444 (Version 1)
Quarter: 2014Q2

REPORT INFORMATION
  Report Type: Report from Study
  Country: US (occurrence: US)
  Receive Date: 20140615
  Receipt Date: 20140615
  Transmission Date: 20141212
  Serious: Yes (Hospitalization)
  Sender: FDA-Public Use
  Company Number: PHHY2014US072147

PATIENT
  Age: 68 Year
  Sex: Female
  Weight: 58 kg

DRUGS (19)
  1. BASILIXIMAB [Suspect]
     Indication: RENAL TRANSPLANT
     Dosage: UNK UKN, UNK
  2. MYCOPHENOLATE MOFETIL [Suspect]
     Indication: RENAL TRANSPLANT
     Dosage: 1 G, BID
     Route: 048
  3. PROTONIX [Concomitant]
     Dosage: UNK UKN, UNK
  4. NOVOLIN N [Concomitant]
     Dosage: UNK UKN, UNK
  5. NIFEDIPINE [Concomitant]
     Dosage: UNK UKN, UNK
  6. LEVOTHYROXINE [Concomitant]
     Dosage: UNK UKN, UNK
  7. TYLENOL [Concomitant]
     Dosage: UNK UKN, UNK
  8. SENSIPAR [Concomitant]
     Dosage: UNK UKN, UNK
  9. LIPITOR [Concomitant]
     Dosage: UNK UKN, UNK
  10. MAGNESIUM OXIDE [Concomitant]
     Dosage: UNK UKN, UNK
  11. BICITRA                            /00586801/ [Concomitant]
     Dosage: UNK UKN, UNK
  12. FISH OIL [Concomitant]
     Dosage: UNK UKN, UNK
  13. K-PHOS [Concomitant]
     Dosage: UNK UKN, UNK
  14. NOVOLIN R [Concomitant]
     Dosage: UNK UKN, UNK
  15. DIOVAN [Concomitant]
     Dosage: UNK UKN, UNK
  16. ASPIRIN [Concomitant]
     Dosage: UNK UKN, UNK
  17. PREDNISONE [Concomitant]
     Dosage: UNK UKN, UNK
  18. CLONIDINE [Concomitant]
     Dosage: UNK UKN, UNK
  19. HYDRALAZINE [Concomitant]
     Dosage: UNK UKN, UNK

REACTIONS (5)
  - Fall [Unknown]
  - Hip fracture [Recovered/Resolved]
  - Arthralgia [Unknown]
  - Brain natriuretic peptide increased [Unknown]
  - Bone density decreased [Unknown]
